FAERS Safety Report 5328951-4 (Version None)
Quarter: 2007Q2

REPORT INFORMATION
  Report Type: 
  Country: None (occurrence: None)
  Receive Date: 20070518
  Receipt Date: 20070510
  Transmission Date: 20071010
  Serious: Yes (Other)
  Sender: FDA-Public Use
  Company Number: AU-SANOFI-SYNTHELABO-A01200704981

PATIENT
  Sex: Female
  Weight: 44 kg

DRUGS (1)
  1. STILNOX [Suspect]
     Route: 048
     Dates: start: 20061015, end: 20061015

REACTIONS (2)
  - ABNORMAL SLEEP-RELATED EVENT [None]
  - IMPAIRED DRIVING ABILITY [None]
